FAERS Safety Report 5820039-9 (Version None)
Quarter: 2008Q3

REPORT INFORMATION
  Report Type: 
  Country: None (occurrence: None)
  Receive Date: 20080718
  Receipt Date: 20080718
  Transmission Date: 20090109
  Serious: Yes (Hospitalization)
  Sender: FDA-Public Use
  Company Number: None

PATIENT
  Sex: Male
  Weight: 130 kg

DRUGS (2)
  1. CYTARABINE [Suspect]
     Dates: end: 20080706
  2. ETOPOSIDE [Suspect]
     Dates: end: 20080705

REACTIONS (5)
  - BLOOD PRESSURE DECREASED [None]
  - BODY TEMPERATURE INCREASED [None]
  - DIARRHOEA [None]
  - HEART RATE INCREASED [None]
  - OCCULT BLOOD POSITIVE [None]
